FAERS Safety Report 21779867 (Version 3)
Quarter: 2023Q1

REPORT INFORMATION
  Report Type: Spontaneous
  Country: US (occurrence: US)
  Receive Date: 20221226
  Receipt Date: 20230222
  Transmission Date: 20230418
  Serious: Yes (Other)
  Sender: FDA-Public Use
  Company Number: US-BRISTOL-MYERS SQUIBB COMPANY-2022-158798

PATIENT
  Age: 63 Year
  Sex: Male

DRUGS (1)
  1. REVLIMID [Suspect]
     Active Substance: LENALIDOMIDE
     Indication: Plasma cell myeloma
     Dosage: TAKE 1 CAPSULE BY MOUTH DAILY FOR 28 DAYS. TAKE AT ABOUT THE SAME TIME EACH DAY, WITH OR WITHOUT FOO
     Route: 048
     Dates: start: 20220729, end: 20230216

REACTIONS (3)
  - Neuropathy peripheral [Unknown]
  - Muscle spasms [Unknown]
  - Thrombosis [Unknown]
